FAERS Safety Report 5114324-6 (Version None)
Quarter: 2006Q3

REPORT INFORMATION
  Report Type: 
  Country: None (occurrence: None)
  Receive Date: 20060925
  Receipt Date: 20060816
  Transmission Date: 20061208
  Serious: Yes (Hospitalization)
  Sender: FDA-Public Use
  Company Number: DE-MERCK-0608DEU00120

PATIENT
  Age: 82 Year
  Sex: Male
  Weight: 41 kg

DRUGS (6)
  1. VYTORIN [Suspect]
     Indication: HYPERLIPIDAEMIA
     Route: 048
     Dates: start: 20060101, end: 20060811
  2. PANTOPRAZOLE SODIUM [Concomitant]
     Indication: PROPHYLAXIS AGAINST GASTROINTESTINAL ULCER
     Route: 065
  3. ENOXAPARIN SODIUM [Concomitant]
     Indication: AORTIC VALVE REPLACEMENT
     Route: 065
  4. BISOPROLOL FUMARATE [Concomitant]
     Indication: RENAL TUBULAR NECROSIS
     Route: 065
  5. SPIRONOLACTONE [Concomitant]
     Indication: RENAL TUBULAR NECROSIS
     Route: 065
  6. SPIRONOLACTONE [Concomitant]
     Indication: HEPATIC CIRRHOSIS
     Route: 065

REACTIONS (1)
  - NEUTROPENIA [None]
